FAERS Safety Report 5491692-7 (Version None)
Quarter: 2007Q4

REPORT INFORMATION
  Report Type: 
  Country: None (occurrence: None)
  Receive Date: 20071018
  Receipt Date: 20071008
  Transmission Date: 20080405
  Serious: Yes (Other)
  Sender: FDA-Public Use
  Company Number: 161865USA

PATIENT
  Age: 57 Year
  Sex: Female

DRUGS (5)
  1. DOXORUBICIN HYDROCHLORIDE [Suspect]
     Indication: NON-HODGKIN'S LYMPHOMA
  2. VINCRISTINE [Suspect]
     Indication: NON-HODGKIN'S LYMPHOMA
  3. PREDNISONE [Suspect]
  4. RITUXIMAB [Suspect]
  5. CYCLOPHOSPHAMIDE [Suspect]

REACTIONS (2)
  - SARCOIDOSIS [None]
  - SPLEEN DISORDER [None]
